FAERS Safety Report 6060747-0 (Version None)
Quarter: 2009Q1

REPORT INFORMATION
  Report Type: 
  Country: None (occurrence: None)
  Receive Date: 20090202
  Receipt Date: 20090123
  Transmission Date: 20090719
  Serious: Yes (Hospitalization)
  Sender: FDA-Public Use
  Company Number: SE-PFIZER INC-2009160614

PATIENT

DRUGS (12)
  1. BLINDED *PLACEBO [Suspect]
     Indication: COLORECTAL CANCER
     Dosage: UNK
     Route: 048
     Dates: start: 20080728, end: 20081217
  2. BLINDED SUNITINIB MALATE [Suspect]
     Indication: COLORECTAL CANCER
     Dosage: UNK
     Route: 048
     Dates: start: 20080728, end: 20081217
  3. IRINOTECAN HCL [Suspect]
     Indication: COLORECTAL CANCER
     Dosage: UNK
     Route: 042
     Dates: start: 20080728, end: 20081217
  4. FLUOROURACIL [Suspect]
     Indication: COLORECTAL CANCER
     Dosage: UNK
     Dates: start: 20080728, end: 20081217
  5. CALCIUM FOLINATE [Suspect]
     Indication: COLORECTAL CANCER
     Dosage: UNK
     Dates: start: 20080728, end: 20081217
  6. PARACETAMOL [Concomitant]
     Dates: start: 20080710
  7. METOCLOPRAMIDE [Concomitant]
     Dates: start: 20080722
  8. ZOLPIDEM [Concomitant]
     Dates: start: 20080724
  9. GRANISETRON [Concomitant]
     Dates: start: 20080707, end: 20090120
  10. POTASSIUM CHLORIDE [Concomitant]
     Dates: start: 20080618
  11. INSULIN ASPART/PROTAMINE [Concomitant]
     Dates: start: 20080926
  12. OXYCODONE [Concomitant]

REACTIONS (1)
  - ILEUS [None]
